FAERS Safety Report 7472943-6 (Version None)
Quarter: 2011Q2

REPORT INFORMATION
  Report Type: 
  Country: None (occurrence: None)
  Receive Date: 20110511
  Receipt Date: 20110504
  Transmission Date: 20111010
  Serious: Yes (Death, Other)
  Sender: FDA-Public Use
  Company Number: ES-CELGENEUS-144-50794-10020926

PATIENT
  Sex: Female

DRUGS (4)
  1. VIDAZA [Suspect]
     Indication: MYELODYSPLASTIC SYNDROME
     Route: 065
     Dates: start: 20070709, end: 20081021
  2. ARANESP [Concomitant]
     Route: 065
  3. MERCAPTOPURINE [Concomitant]
     Dosage: 25 MILLIGRAM
     Route: 065
     Dates: start: 20100517
  4. VIDAZA [Suspect]
     Route: 065
     Dates: end: 20090101

REACTIONS (4)
  - MYELODYSPLASTIC SYNDROME TRANSFORMATION [None]
  - ANAEMIA [None]
  - ACUTE MYELOID LEUKAEMIA [None]
  - NEUTROPENIA [None]
